FAERS Safety Report 7135595-0 (Version None)
Quarter: 2010Q4

REPORT INFORMATION
  Report Type: 
  Country: None (occurrence: None)
  Receive Date: 20101203
  Receipt Date: 20101123
  Transmission Date: 20110411
  Serious: Yes (Life-Threatening)
  Sender: FDA-Public Use
  Company Number: GB-ABBOTT-10P-167-0687549-00

PATIENT
  Age: 70 Year
  Sex: Male

DRUGS (4)
  1. HUMIRA [Suspect]
     Indication: PSORIASIS
     Route: 058
     Dates: start: 20090401
  2. METHOTREXATE [Suspect]
     Indication: PSORIASIS
     Route: 048
     Dates: start: 20060101, end: 20100101
  3. ACITRETIN [Concomitant]
     Indication: PSORIASIS
     Route: 048
  4. CYCLOSPORINE [Concomitant]
     Indication: PSORIASIS
     Route: 048

REACTIONS (3)
  - HAEMOGLOBIN DECREASED [None]
  - LARGE CELL CARCINOMA OF THE RESPIRATORY TRACT STAGE UNSPECIFIED [None]
  - METASTASIS [None]
